FAERS Safety Report 6186212-8 (Version None)
Quarter: 2009Q2

REPORT INFORMATION
  Report Type: 
  Country: None (occurrence: None)
  Receive Date: 20090511
  Receipt Date: 20090428
  Transmission Date: 20091009
  Serious: Yes (Other)
  Sender: FDA-Public Use
  Company Number: PHHY2009IT16283

PATIENT
  Age: 15 Year
  Sex: Female

DRUGS (2)
  1. TEGRETOL [Suspect]
     Indication: TEMPORAL LOBE EPILEPSY
  2. LAMICTAL [Concomitant]
     Indication: TEMPORAL LOBE EPILEPSY

REACTIONS (8)
  - ABDOMINAL PAIN LOWER [None]
  - APPENDICECTOMY [None]
  - APPENDICITIS [None]
  - ARTHRALGIA [None]
  - ARTHRITIS [None]
  - JOINT EFFUSION [None]
  - MUSCLE CONTRACTURE [None]
  - MUSCLE DISORDER [None]
